FAERS Safety Report 18991209 (Version 1)
Quarter: 2021Q1

REPORT INFORMATION
  Report Type: Spontaneous
  Country: FR (occurrence: FR)
  Receive Date: 20210310
  Receipt Date: 20210310
  Transmission Date: 20210420
  Serious: Yes (Other)
  Sender: FDA-Public Use
  Company Number: FR-ALKEM LABORATORIES LIMITED-FR-ALKEM-2021-01040

PATIENT
  Age: 26 Year
  Sex: Female

DRUGS (1)
  1. AZATHIOPRINE. [Suspect]
     Active Substance: AZATHIOPRINE
     Indication: CROHN^S DISEASE
     Dosage: 150 MILLIGRAM, QD
     Route: 065

REACTIONS (4)
  - Exposure during pregnancy [Unknown]
  - Cholestasis of pregnancy [Recovered/Resolved]
  - Vitamin K deficiency [Recovered/Resolved]
  - Coagulopathy [Recovered/Resolved]
